FAERS Safety Report 12849989 (Version 1)
Quarter: 2016Q4

REPORT INFORMATION
  Report Type: Spontaneous
  Country: US (occurrence: US)
  Receive Date: 20161014
  Receipt Date: 20161014
  Transmission Date: 20170207
  Serious: No
  Sender: FDA-Public Use
  Company Number: US-ROCHE-1810965

PATIENT
  Sex: Male

DRUGS (8)
  1. HYDROCORTISONE VALERATE. [Concomitant]
     Active Substance: HYDROCORTISONE VALERATE
  2. ATORVASTATIN [Concomitant]
     Active Substance: ATORVASTATIN
  3. PREDNISONE. [Concomitant]
     Active Substance: PREDNISONE
  4. ESBRIET [Suspect]
     Active Substance: PIRFENIDONE
     Indication: PRODUCT USED FOR UNKNOWN INDICATION
     Route: 048
     Dates: start: 20160407
  5. FLUOCINOLONE [Concomitant]
     Active Substance: FLUOCINOLONE
  6. FINASTERIDE. [Concomitant]
     Active Substance: FINASTERIDE
  7. ESBRIET [Suspect]
     Active Substance: PIRFENIDONE
     Route: 048
     Dates: start: 20160808
  8. BREO (UNK INGREDIENTS) [Concomitant]

REACTIONS (1)
  - Rash [Recovering/Resolving]
